FAERS Safety Report 9333656 (Version 3)
Quarter: 2013Q3

REPORT INFORMATION
  Report Type: Spontaneous
  Country: US (occurrence: US)
  Receive Date: 20130606
  Receipt Date: 20130725
  Transmission Date: 20140515
  Serious: Yes (Disabling, Other)
  Sender: FDA-Public Use
  Company Number: US-MYLANLABS-2013S1010405

PATIENT
  Age: 54 Year
  Sex: Female
  Weight: 73.3 kg

DRUGS (11)
  1. COSYNTROPIN FOR INJECTION [Suspect]
     Indication: DIAGNOSTIC PROCEDURE
     Dosage: DILUTED WITH 10CC NORMAL SALINE AND GIVE OVER 3 MINUTES
     Route: 042
     Dates: start: 20130402, end: 20130402
  2. COSYNTROPIN FOR INJECTION [Suspect]
     Indication: ADRENAL INSUFFICIENCY
     Dosage: DILUTED WITH 10CC NORMAL SALINE AND GIVE OVER 3 MINUTES
     Route: 042
     Dates: start: 20130402, end: 20130402
  3. CALCIUM [Concomitant]
     Indication: HYPOCALCAEMIA
     Dosage: CHEWABLE
     Route: 048
  4. VITAMIN D3 [Concomitant]
     Indication: HYPOCALCAEMIA
     Route: 048
  5. LUVOX [Concomitant]
     Indication: DEPRESSION
     Dosage: EXTENDED-RELEASE
     Route: 048
  6. PAMELOR [Concomitant]
     Route: 048
  7. PROTONIX [Concomitant]
     Indication: GASTROOESOPHAGEAL REFLUX DISEASE
  8. MAXALT [Concomitant]
     Indication: MIGRAINE
  9. ZOFRAN [Concomitant]
     Indication: MIGRAINE
  10. INDOMETHACIN [Concomitant]
     Indication: MIGRAINE
  11. CALCITRIOL [Concomitant]

REACTIONS (4)
  - Pain in extremity [Recovering/Resolving]
  - Burning sensation [Recovering/Resolving]
  - Muscular weakness [Not Recovered/Not Resolved]
  - Balance disorder [Not Recovered/Not Resolved]
